FAERS Safety Report 18361246 (Version 1)
Quarter: 2020Q4

REPORT INFORMATION
  Report Type: Spontaneous
  Country: US (occurrence: US)
  Receive Date: 20201008
  Receipt Date: 20201008
  Transmission Date: 20210114
  Serious: No
  Sender: FDA-Public Use
  Company Number: US-UNIQUE PHARMACEUTICAL LABORATORIES-2019RIS00654

PATIENT
  Sex: Female
  Weight: 97.51 kg

DRUGS (8)
  1. ATENOLOL. [Suspect]
     Active Substance: ATENOLOL
     Indication: PALPITATIONS
     Dosage: 25 MG, 1X/DAY ^IN THE MORNING^
     Route: 048
     Dates: start: 20191221
  2. ATENOLOL. [Suspect]
     Active Substance: ATENOLOL
     Indication: ANXIETY
     Dosage: 50 MG, 1X/DAY ^IN THE EVENING^
     Route: 048
     Dates: start: 20191221
  3. ATENOLOL. [Suspect]
     Active Substance: ATENOLOL
     Indication: HYPERTENSION
     Dosage: 25 MG, 1X/DAY ^IN THE MORNING^
     Route: 048
     Dates: start: 2018
  4. VITAMIN C [Concomitant]
     Active Substance: ASCORBIC ACID
  5. ATENOLOL. [Suspect]
     Active Substance: ATENOLOL
     Indication: MITRAL VALVE PROLAPSE
     Dosage: 50 MG, 1X/DAY ^IN THE EVENING^
     Route: 048
     Dates: start: 2018
  6. VERSAPRO AND PROGESTERONE [Concomitant]
     Dosage: UNK, 1X/DAY
     Route: 061
  7. EMERGENCY C [Concomitant]
  8. BI-EST [Concomitant]
     Dosage: UNK, 1X/DAY
     Route: 061

REACTIONS (8)
  - Blood glucose abnormal [Unknown]
  - Hypoaesthesia [Not Recovered/Not Resolved]
  - Inappropriate schedule of product administration [Recovered/Resolved]
  - Parosmia [Not Recovered/Not Resolved]
  - Weight increased [Unknown]
  - Taste disorder [Not Recovered/Not Resolved]
  - Sensory disturbance [Not Recovered/Not Resolved]
  - Weight decreased [Unknown]

NARRATIVE: CASE EVENT DATE: 2019
